FAERS Safety Report 20176002 (Version 2)
Quarter: 2021Q4

REPORT INFORMATION
  Report Type: Spontaneous
  Country: JP (occurrence: JP)
  Receive Date: 20211213
  Receipt Date: 20211229
  Transmission Date: 20220303
  Serious: Yes (Other)
  Sender: FDA-Public Use
  Company Number: JP-OTSUKA-2021_042561

PATIENT
  Age: 90 Year
  Sex: Female
  Weight: 51.6 kg

DRUGS (23)
  1. SAMSCA [Suspect]
     Active Substance: TOLVAPTAN
     Indication: Generalised oedema
     Dosage: 7.5 MG, QD
     Route: 048
     Dates: start: 20211110, end: 20211112
  2. WARFARIN POTASSIUM [Suspect]
     Active Substance: WARFARIN POTASSIUM
     Indication: Mitral valve stenosis
     Dosage: 3.25 MG, QD
     Route: 048
     Dates: start: 201012, end: 20211111
  3. WARFARIN POTASSIUM [Suspect]
     Active Substance: WARFARIN POTASSIUM
     Indication: Aortic valve stenosis
     Dosage: 3.25 MG, UNK
     Route: 048
     Dates: start: 20211114, end: 20211118
  4. WARFARIN POTASSIUM [Suspect]
     Active Substance: WARFARIN POTASSIUM
     Dosage: 2.5 MG, UNK
     Route: 048
     Dates: start: 20211122
  5. WARFARIN POTASSIUM [Suspect]
     Active Substance: WARFARIN POTASSIUM
     Dosage: 0.5, UNK
     Route: 048
  6. OMEPRAZOLE SODIUM [Suspect]
     Active Substance: OMEPRAZOLE SODIUM
     Indication: Decreased appetite
     Dosage: 20 MG, QD
     Route: 042
     Dates: start: 20211104, end: 20211109
  7. PLAVIX [Concomitant]
     Active Substance: CLOPIDOGREL BISULFATE
     Indication: Product used for unknown indication
     Dosage: 75 MG, QD (IN THE MORNING)
     Route: 048
     Dates: end: 20211103
  8. LASIX [Concomitant]
     Active Substance: FUROSEMIDE
     Indication: Product used for unknown indication
     Dosage: UNK
     Route: 048
  9. LANSOPRAZOLE [Concomitant]
     Active Substance: LANSOPRAZOLE
     Indication: Product used for unknown indication
     Dosage: UNK
     Route: 065
  10. CARVEDILOL [Concomitant]
     Active Substance: CARVEDILOL
     Indication: Product used for unknown indication
     Dosage: UNK
     Route: 065
  11. ADALAT [Concomitant]
     Active Substance: NIFEDIPINE
     Indication: Product used for unknown indication
     Dosage: UNK
     Route: 065
  12. ENALAPRIL [Concomitant]
     Active Substance: ENALAPRIL
     Indication: Product used for unknown indication
     Dosage: UNK
     Route: 065
  13. CRESTOR [Concomitant]
     Active Substance: ROSUVASTATIN CALCIUM
     Indication: Product used for unknown indication
     Dosage: UNK
     Route: 065
  14. ELDECALCITOL [Concomitant]
     Active Substance: ELDECALCITOL
     Indication: Product used for unknown indication
     Dosage: 0.75 MCG, QD (IN THE MORNING)
     Route: 065
  15. YD SOLITA T NO.3 [Concomitant]
     Indication: Product used for unknown indication
     Dosage: 1500ML/DAY
     Route: 065
     Dates: start: 20211104, end: 20211107
  16. YD SOLITA T NO.3 [Concomitant]
     Dosage: 1000ML/DAY
     Route: 065
     Dates: start: 20211108, end: 20211110
  17. YD SOLITA T NO.3 [Concomitant]
     Dosage: 500ML/DAY
     Route: 065
     Dates: start: 20211111, end: 20211130
  18. DIPYRONE [Concomitant]
     Active Substance: DIPYRONE
     Indication: Product used for unknown indication
     Dosage: UNK
     Route: 065
     Dates: start: 20211103, end: 20211103
  19. PIPERACILLIN SODIUM\TAZOBACTAM SODIUM [Concomitant]
     Active Substance: PIPERACILLIN SODIUM\TAZOBACTAM SODIUM
     Indication: Product used for unknown indication
     Dosage: 4.5 G/DAY
     Route: 041
     Dates: start: 20211103, end: 20211112
  20. FUROSEMIDE [Concomitant]
     Active Substance: FUROSEMIDE
     Indication: Product used for unknown indication
     Dosage: 20 MG/DAY
     Route: 065
     Dates: start: 20211108, end: 20211110
  21. FUROSEMIDE [Concomitant]
     Active Substance: FUROSEMIDE
     Dosage: 80 MG/DAY
     Route: 065
     Dates: start: 20211113, end: 20211129
  22. SODIUM CHLORIDE [Concomitant]
     Active Substance: SODIUM CHLORIDE
     Indication: Product used for unknown indication
     Dosage: 40ML/DAY
     Route: 065
     Dates: start: 20211108
  23. MENATETRENONE [Concomitant]
     Active Substance: MENATETRENONE
     Indication: Product used for unknown indication
     Dosage: 20MG, UNK
     Route: 042
     Dates: start: 20211112

REACTIONS (2)
  - International normalised ratio increased [Recovered/Resolved]
  - Product use in unapproved indication [Unknown]

NARRATIVE: CASE EVENT DATE: 20211112
